FAERS Safety Report 9110120 (Version 2)
Quarter: 2013Q2

REPORT INFORMATION
  Report Type: Spontaneous
  Country: FR (occurrence: FR)
  Receive Date: 20130222
  Receipt Date: 20130514
  Transmission Date: 20140414
  Serious: Yes (Death, Hospitalization)
  Sender: FDA-Public Use
  Company Number: FR-JNJFOC-20130208355

PATIENT
  Age: 75 Year
  Sex: Female
  Weight: 48 kg

DRUGS (2)
  1. RISPERDAL CONSTA [Suspect]
     Indication: DELUSIONAL DISORDER, UNSPECIFIED TYPE
     Route: 030
     Dates: start: 20120102, end: 20130115
  2. RISPERDAL CONSTA [Suspect]
     Indication: DELUSIONAL DISORDER, UNSPECIFIED TYPE
     Route: 030
     Dates: start: 20121217

REACTIONS (7)
  - Dysphagia [Unknown]
  - Torticollis [Fatal]
  - Hypertonia [Fatal]
  - Extrapyramidal disorder [Fatal]
  - Gastroenteritis viral [Unknown]
  - Pneumonia aspiration [Unknown]
  - Hypoxia [Fatal]
